FAERS Safety Report 5302038-9 (Version None)
Quarter: 2007Q2

REPORT INFORMATION
  Report Type: 
  Country: None (occurrence: None)
  Receive Date: 20070419
  Receipt Date: 20070416
  Transmission Date: 20071010
  Serious: Yes (Hospitalization)
  Sender: FDA-Public Use
  Company Number: JP-JNJFOC-20070104506

PATIENT
  Sex: Male
  Weight: 60 kg

DRUGS (7)
  1. PLACEBO [Suspect]
     Route: 042
  2. PLACEBO [Suspect]
     Indication: COLITIS ULCERATIVE
     Route: 042
  3. PREDONINE [Suspect]
     Indication: COLITIS ULCERATIVE
     Route: 048
  4. ALTAT [Concomitant]
     Indication: GASTROINTESTINAL DISORDER THERAPY
     Dosage: START DATE BEFORE SEP-05
     Route: 048
  5. BIOFERMIN [Concomitant]
     Indication: COLITIS ULCERATIVE
     Route: 048
  6. RACOL (MILK) [Concomitant]
     Indication: COLITIS ULCERATIVE
     Route: 048
  7. ANTIBIOTICS [Concomitant]
     Indication: ANTIPYRESIS
     Route: 065

REACTIONS (1)
  - EOSINOPHILIC MYOCARDITIS [None]
